FAERS Safety Report 19738797 (Version 1)
Quarter: 2021Q3

REPORT INFORMATION
  Report Type: Report from Study
  Country: None (occurrence: CA)
  Receive Date: 20210824
  Receipt Date: 20210824
  Transmission Date: 20211014
  Serious: Yes (Other)
  Sender: FDA-Public Use
  Company Number: CA-ABBVIE-21K-028-4048319-00

PATIENT
  Sex: Female

DRUGS (1)
  1. HUMIRA [Suspect]
     Active Substance: ADALIMUMAB
     Indication: CROHN^S DISEASE
     Route: 058
     Dates: start: 20141219

REACTIONS (6)
  - Pain [Unknown]
  - Surgery [Unknown]
  - Volvulus [Unknown]
  - Obstruction [Unknown]
  - Unevaluable event [Recovered/Resolved]
  - Gastrointestinal scarring [Unknown]

NARRATIVE: CASE EVENT DATE: 2020
